FAERS Safety Report 6346863-4 (Version None)
Quarter: 2009Q3

REPORT INFORMATION
  Report Type: 
  Country: None (occurrence: None)
  Receive Date: 20090908
  Receipt Date: 20090908
  Transmission Date: 20100115
  Serious: No
  Sender: FDA-Public Use
  Company Number: None

PATIENT
  Age: 40 Year
  Sex: Female
  Weight: 80.7403 kg

DRUGS (1)
  1. AVELOX [Suspect]
     Indication: SKIN INFECTION
     Dosage: 1 DAILY PO
     Route: 048
     Dates: start: 20090901, end: 20090903

REACTIONS (4)
  - ANXIETY [None]
  - HEART RATE INCREASED [None]
  - HYPERTENSION [None]
  - TREMOR [None]
